FAERS Safety Report 14202818 (Version 1)
Quarter: 2017Q4

REPORT INFORMATION
  Report Type: Spontaneous
  Country: US (occurrence: US)
  Receive Date: 20171119
  Receipt Date: 20171119
  Transmission Date: 20180321
  Serious: No
  Sender: FDA-Public Use
  Company Number: US-DUSA PHARMACEUTICALS, INC.-2034590

PATIENT
  Age: 68 Year
  Sex: Male

DRUGS (4)
  1. NASONEX [Concomitant]
     Active Substance: MOMETASONE FUROATE
  2. LEVULAN KERASTICK [Suspect]
     Active Substance: AMINOLEVULINIC ACID HYDROCHLORIDE
     Indication: ACTINIC KERATOSIS
     Route: 061
     Dates: start: 20161011, end: 20161011
  3. NASACORT [Concomitant]
     Active Substance: TRIAMCINOLONE ACETONIDE
  4. XYZAL [Concomitant]
     Active Substance: LEVOCETIRIZINE DIHYDROCHLORIDE

REACTIONS (2)
  - Application site pain [Not Recovered/Not Resolved]
  - Neuralgia [Not Recovered/Not Resolved]

NARRATIVE: CASE EVENT DATE: 20161011
